FAERS Safety Report 9260160 (Version 1)
Quarter: 2013Q2

REPORT INFORMATION
  Report Type: Spontaneous
  Country: US (occurrence: US)
  Receive Date: 20130429
  Receipt Date: 20130429
  Transmission Date: 20140414
  Serious: No
  Sender: FDA-Public Use
  Company Number: US-PFIZER INC-2013132585

PATIENT
  Age: 41 Year
  Sex: Female
  Weight: 72.56 kg

DRUGS (2)
  1. PRISTIQ [Suspect]
     Indication: CONVULSION
     Dosage: 50 MG, 1X/DAY
     Route: 048
     Dates: start: 2011
  2. JANUVIA [Concomitant]
     Dosage: 100 MG, 1X/DAY

REACTIONS (3)
  - Malaise [Unknown]
  - Drug intolerance [Unknown]
  - Off label use [Unknown]
